FAERS Safety Report 21535821 (Version 2)
Quarter: 2022Q4

REPORT INFORMATION
  Report Type: Spontaneous
  Country: IT (occurrence: IT)
  Receive Date: 20221101
  Receipt Date: 20221219
  Transmission Date: 20230112
  Serious: Yes (Hospitalization, Other)
  Sender: FDA-Public Use
  Company Number: None

PATIENT
  Age: 38 Year
  Sex: Female

DRUGS (2)
  1. OLANZAPINE [Suspect]
     Active Substance: OLANZAPINE
     Indication: Psychotic disorder
     Dosage: 530 MG (530UNITA DI MISURA: MILLIGRAMMI FREQUENZA SOMMINISTRAZIONE: TOTALE VIA SOMMINISTRAZIONE: ORA
     Route: 048
     Dates: start: 20220708
  2. TAVOR (LORAZEPAM) [Suspect]
     Active Substance: LORAZEPAM
     Indication: Psychotic disorder
     Dosage: 1 DOSAGE FORM (DOSAGGIO: 1UNITA DI MISURA: UNITA POSOLOGICA FREQUENZA SOMMINISTRAZIONE: TOTALE VIA S
     Route: 048

REACTIONS (3)
  - Sopor [Recovering/Resolving]
  - Drug abuse [Recovered/Resolved]
  - Respiratory alkalosis [Recovering/Resolving]

NARRATIVE: CASE EVENT DATE: 20220708
